FAERS Safety Report 20495525 (Version 2)
Quarter: 2022Q1

REPORT INFORMATION
  Report Type: Spontaneous
  Country: US (occurrence: US)
  Receive Date: 20220221
  Receipt Date: 20220227
  Transmission Date: 20220423
  Serious: No
  Sender: FDA-Public Use
  Company Number: US-AMGEN-USASP2022024515

PATIENT
  Age: 78 Year
  Sex: Female
  Weight: 45.351 kg

DRUGS (3)
  1. REPATHA [Suspect]
     Active Substance: EVOLOCUMAB
     Indication: Coronary artery disease
     Dosage: 140 MILLIGRAM, Q2WK
     Route: 065
     Dates: start: 20220123
  2. REPATHA [Suspect]
     Active Substance: EVOLOCUMAB
     Indication: Blood cholesterol increased
  3. REPATHA [Suspect]
     Active Substance: EVOLOCUMAB
     Indication: High density lipoprotein increased

REACTIONS (9)
  - Illness [Unknown]
  - Feeling abnormal [Recovered/Resolved]
  - Asthenia [Recovered/Resolved]
  - Abdominal pain upper [Recovered/Resolved]
  - Diarrhoea [Recovered/Resolved]
  - Fatigue [Recovered/Resolved]
  - Dizziness [Recovered/Resolved]
  - Blood pressure increased [Recovered/Resolved]
  - Headache [Recovered/Resolved]

NARRATIVE: CASE EVENT DATE: 20220101
